FAERS Safety Report 6580212-1 (Version None)
Quarter: 2010Q1

REPORT INFORMATION
  Report Type: 
  Country: None (occurrence: None)
  Receive Date: 20100203
  Receipt Date: 20100119
  Transmission Date: 20100710
  Serious: Yes (Death, Hospitalization, Other)
  Sender: FDA-Public Use
  Company Number: 090820-0000928

PATIENT
  Age: 63 Year
  Sex: Male
  Weight: 88 kg

DRUGS (7)
  1. ASPARAGINASE (ASPARAGINASE) [Suspect]
     Indication: ACUTE LYMPHOCYTIC LEUKAEMIA
     Dosage: 20900 IU; 1X; IV
     Route: 042
     Dates: start: 20090703, end: 20090703
  2. SPRYCEL [Suspect]
     Indication: ACUTE LYMPHOCYTIC LEUKAEMIA
     Dosage: 100 MG; QD; PO, 100 MG; QD; PO
     Route: 048
     Dates: start: 20091020, end: 20091102
  3. SPRYCEL [Suspect]
     Indication: ACUTE LYMPHOCYTIC LEUKAEMIA
     Dosage: 100 MG; QD; PO, 100 MG; QD; PO
     Route: 048
     Dates: start: 20090714
  4. METHOTREXATE [Suspect]
     Indication: ACUTE LYMPHOCYTIC LEUKAEMIA
     Dosage: 2080 MG; QD; IV
     Route: 042
     Dates: start: 20090702, end: 20090702
  5. ARIXTRA [Concomitant]
  6. LYRICA [Concomitant]
  7. CHIBROCADRON [Concomitant]

REACTIONS (10)
  - APHASIA [None]
  - COUGH [None]
  - DECREASED APPETITE [None]
  - FEBRILE BONE MARROW APLASIA [None]
  - HAEMORRHAGE [None]
  - INFECTION [None]
  - INFLAMMATION [None]
  - PETECHIAE [None]
  - RECTAL HAEMORRHAGE [None]
  - WEIGHT DECREASED [None]
